FAERS Safety Report 6231363-2 (Version None)
Quarter: 2009Q2

REPORT INFORMATION
  Report Type: 
  Country: None (occurrence: None)
  Receive Date: 20090616
  Receipt Date: 20090603
  Transmission Date: 20091009
  Serious: Yes (Life-Threatening)
  Sender: FDA-Public Use
  Company Number: BS-ELI_LILLY_AND_COMPANY-BS200906001339

PATIENT
  Age: 47 Year
  Sex: Female

DRUGS (1)
  1. DULOXETINE HYDROCHLORIDE [Suspect]
     Indication: FIBROMYALGIA
     Dosage: 60 MG, UNKNOWN
     Route: 065
     Dates: end: 20090603

REACTIONS (4)
  - CHEST DISCOMFORT [None]
  - HYPOAESTHESIA ORAL [None]
  - SWOLLEN TONGUE [None]
  - THROAT TIGHTNESS [None]
